FAERS Safety Report 21180005 (Version 1)
Quarter: 2022Q3

REPORT INFORMATION
  Report Type: Report from Study
  Country: US (occurrence: US)
  Receive Date: 20220805
  Receipt Date: 20220805
  Transmission Date: 20221027
  Serious: No
  Sender: FDA-Public Use
  Company Number: US-NOVARTISTESTPH-NVSC2022US177355

PATIENT
  Age: 53 Year
  Sex: Male

DRUGS (1)
  1. ENTRESTO [Suspect]
     Active Substance: SACUBITRIL\VALSARTAN
     Indication: Cardiac failure
     Dosage: 0.5 DOSAGE FORM, BID(HALF TAB TWICE DAILY)
     Route: 048
     Dates: start: 20220711

REACTIONS (4)
  - Drug intolerance [Unknown]
  - Prescribed underdose [Unknown]
  - Hypotension [Unknown]
  - Wrong technique in product usage process [Unknown]
